FAERS Safety Report 15697390 (Version 1)
Quarter: 2018Q4

REPORT INFORMATION
  Report Type: Report from Study
  Country: None (occurrence: HU)
  Receive Date: 20181207
  Receipt Date: 20181207
  Transmission Date: 20190205
  Serious: Yes (Hospitalization)
  Sender: FDA-Public Use
  Company Number: HU-ABBVIE-18S-076-2517465-00

PATIENT
  Sex: Male

DRUGS (2)
  1. DUODOPA [Suspect]
     Active Substance: CARBIDOPA\LEVODOPA
     Indication: PARKINSON^S DISEASE
     Dosage: MD 10.8 ML; CD 3.2 ML/H;ED 2.5 ML?MD 10 ML; CD 3.2 ML/H;ED 1.3 ML
     Route: 050
     Dates: start: 20140116, end: 20181102
  2. ISOPTIN [Concomitant]
     Active Substance: VERAPAMIL HYDROCHLORIDE
     Indication: PRODUCT USED FOR UNKNOWN INDICATION
     Route: 048

REACTIONS (13)
  - Hyperkinesia [Recovering/Resolving]
  - Hyperkinesia [Recovering/Resolving]
  - Cerebral disorder [Unknown]
  - Arteriosclerosis [Unknown]
  - Hypertension [Unknown]
  - Blood cholesterol increased [Unknown]
  - Depression [Unknown]
  - Anaemia [Unknown]
  - Mobility decreased [Recovering/Resolving]
  - Parkinson^s disease [Unknown]
  - Anxiety [Recovering/Resolving]
  - Overdose [Recovered/Resolved]
  - Dementia [Unknown]

NARRATIVE: CASE EVENT DATE: 2018
